FAERS Safety Report 14728582 (Version 4)
Quarter: 2018Q3

REPORT INFORMATION
  Report Type: Report from Study
  Country: JP (occurrence: JP)
  Receive Date: 20180406
  Receipt Date: 20180717
  Transmission Date: 20181010
  Serious: Yes (Hospitalization, Disabling)
  Sender: FDA-Public Use
  Company Number: JP-ACTELION-A-CH2018-170089

PATIENT
  Age: 55 Year
  Sex: Female

DRUGS (14)
  1. SARPOGRELATE [Concomitant]
     Active Substance: SARPOGRELATE
  2. BERAPROST NA [Concomitant]
     Active Substance: BERAPROST SODIUM
  3. SPIRONOLACTONE. [Concomitant]
     Active Substance: SPIRONOLACTONE
  4. FUROSEMIDE. [Concomitant]
     Active Substance: FUROSEMIDE
  5. PREDNISOLONE. [Concomitant]
     Active Substance: PREDNISOLONE
     Dosage: 40 MG, QD
  6. PREDNISOLONE. [Concomitant]
     Active Substance: PREDNISOLONE
     Dosage: 30 MG, QD
     Dates: start: 20180114
  7. DAIPHEN [Concomitant]
     Active Substance: SULFAMETHOXAZOLE\TRIMETHOPRIM
  8. PREGABALIN. [Concomitant]
     Active Substance: PREGABALIN
  9. LIMAPROST ALFADEX [Concomitant]
     Active Substance: LIMAPROST
  10. WARFARIN [Concomitant]
     Active Substance: WARFARIN
  11. ALFACALCIDOL [Concomitant]
     Active Substance: ALFACALCIDOL
  12. BONALON [Concomitant]
     Active Substance: ALENDRONATE SODIUM
  13. TRACLEER [Suspect]
     Active Substance: BOSENTAN
     Indication: SKIN ULCER
     Dosage: 62.5 MG, BID
     Route: 048
     Dates: start: 20171120
  14. CRESTOR [Concomitant]
     Active Substance: ROSUVASTATIN CALCIUM

REACTIONS (5)
  - Interstitial lung disease [Recovered/Resolved]
  - Chronic kidney disease [Not Recovered/Not Resolved]
  - Hyperuricaemia [Not Recovered/Not Resolved]
  - Pneumocystis jirovecii pneumonia [Recovered/Resolved]
  - Dyspnoea [Recovered/Resolved]

NARRATIVE: CASE EVENT DATE: 20171218
